FAERS Safety Report 16035904 (Version 1)
Quarter: 2019Q1

REPORT INFORMATION
  Report Type: Spontaneous
  Country: US (occurrence: US)
  Receive Date: 20190305
  Receipt Date: 20190305
  Transmission Date: 20190418
  Serious: Yes (Other)
  Sender: FDA-Public Use
  Company Number: US-MYLANLABS-2019M1018895

PATIENT
  Age: 7 Decade
  Sex: Female

DRUGS (17)
  1. MAGNESIUM [Concomitant]
     Active Substance: MAGNESIUM
  2. BACLOFEN. [Concomitant]
     Active Substance: BACLOFEN
  3. VOLTAREN [Concomitant]
     Active Substance: DICLOFENAC SODIUM
  4. DICLOFENAC [Concomitant]
     Active Substance: DICLOFENAC
  5. HUMALOG [Concomitant]
     Active Substance: INSULIN LISPRO
  6. LISINOPRIL. [Suspect]
     Active Substance: LISINOPRIL
     Indication: BLOOD PRESSURE ABNORMAL
     Route: 065
  7. TIZANIDINE. [Concomitant]
     Active Substance: TIZANIDINE
  8. LIDOCAINE. [Concomitant]
     Active Substance: LIDOCAINE
  9. POTASSIUM [Concomitant]
     Active Substance: POTASSIUM
  10. LOSARTAN. [Suspect]
     Active Substance: LOSARTAN
     Indication: BLOOD PRESSURE ABNORMAL
     Route: 065
  11. AMLODIPINE [Suspect]
     Active Substance: AMLODIPINE BESYLATE
     Indication: BLOOD PRESSURE ABNORMAL
     Route: 065
  12. CLONIDINE. [Concomitant]
     Active Substance: CLONIDINE
  13. IBUPROFEN. [Concomitant]
     Active Substance: IBUPROFEN
  14. VITAMINS                           /00067501/ [Concomitant]
     Active Substance: VITAMINS
  15. LANTUS [Concomitant]
     Active Substance: INSULIN GLARGINE
  16. HYDROCHLOROTHIAZIDE. [Suspect]
     Active Substance: HYDROCHLOROTHIAZIDE
     Indication: BLOOD PRESSURE ABNORMAL
     Dosage: UNK
     Route: 065
  17. PROGRAF [Suspect]
     Active Substance: TACROLIMUS\TACROLIMUS ANHYDROUS
     Indication: LIVER TRANSPLANT
     Dosage: 2 MILLIGRAM IN THE MORNING AND 1.5 MG IN NIGHT
     Route: 065

REACTIONS (3)
  - Palpitations [Unknown]
  - Blood pressure increased [Unknown]
  - Electrocardiogram QT prolonged [Not Recovered/Not Resolved]

NARRATIVE: CASE EVENT DATE: 2018
